FAERS Safety Report 9604323 (Version 1)
Quarter: 2013Q4

REPORT INFORMATION
  Report Type: Spontaneous
  Country: GB (occurrence: GB)
  Receive Date: 20131008
  Receipt Date: 20131008
  Transmission Date: 20140711
  Serious: Yes (Other)
  Sender: FDA-Public Use
  Company Number: PHFR2013GB005564

PATIENT
  Age: 57 Year
  Sex: Female
  Weight: 66.7 kg

DRUGS (6)
  1. TEGRETOL RETARD [Suspect]
     Indication: EPILEPSY
     Dosage: 800 MG, UNK
  2. TEGRETOL RETARD [Suspect]
     Dosage: 200 MG, UNK
  3. TEGRETOL [Suspect]
     Indication: EPILEPSY
     Dosage: UNK UKN, UNK
  4. TEGRETOL [Suspect]
     Dosage: 03 DF, (THREE TABLETS OF 600MG)
  5. CLOBAZAM [Suspect]
     Dosage: UNK UKN, UNK
  6. LECITHIN [Concomitant]
     Dosage: UNK UKN, UNK

REACTIONS (15)
  - Urinary incontinence [Unknown]
  - Freezing phenomenon [Unknown]
  - Blindness [Unknown]
  - Bladder disorder [Unknown]
  - Hypertonic bladder [Unknown]
  - Gallbladder disorder [Unknown]
  - Gait disturbance [Unknown]
  - Loss of consciousness [Unknown]
  - Weight increased [Unknown]
  - Hypercholesterolaemia [Unknown]
  - Hypertension [Unknown]
  - Tremor [Unknown]
  - Visual impairment [Unknown]
  - Diplopia [Unknown]
  - Epilepsy [Unknown]
